FAERS Safety Report 11379342 (Version 1)
Quarter: 2015Q3

REPORT INFORMATION
  Report Type: Spontaneous
  Country: US (occurrence: None)
  Receive Date: 20150813
  Receipt Date: 20150813
  Transmission Date: 20151125
  Serious: No
  Sender: FDA-Public Use
  Company Number: None

PATIENT
  Age: 80 Year
  Sex: Female
  Weight: 67.13 kg

DRUGS (5)
  1. COMPLETE MULTI VIT [Concomitant]
  2. CALCIUM [Concomitant]
     Active Substance: CALCIUM
  3. PROMETHAZINE ZYDUS [Suspect]
     Active Substance: PROMETHAZINE HYDROCHLORIDE
     Indication: PYREXIA
     Route: 048
     Dates: start: 20150617, end: 20150621
  4. ADVIL [Concomitant]
     Active Substance: IBUPROFEN
  5. HYDROCHLOROTHIAZIDE. [Concomitant]
     Active Substance: HYDROCHLOROTHIAZIDE

REACTIONS (4)
  - Unevaluable event [None]
  - Skin discolouration [None]
  - Rash [None]
  - Pruritus [None]

NARRATIVE: CASE EVENT DATE: 20150617
